FAERS Safety Report 12912914 (Version 1)
Quarter: 2016Q4

REPORT INFORMATION
  Report Type: Spontaneous
  Country: US (occurrence: US)
  Receive Date: 20161104
  Receipt Date: 20161104
  Transmission Date: 20170207
  Serious: No
  Sender: FDA-Public Use
  Company Number: US-PFIZER INC-2016508176

PATIENT
  Age: 45 Year
  Sex: Male
  Weight: 126 kg

DRUGS (10)
  1. PAXIL [Concomitant]
     Active Substance: PAROXETINE HYDROCHLORIDE
     Indication: BIPOLAR DISORDER
     Dosage: 50 MG, 1X/DAY IN THE MORNING
     Route: 048
     Dates: start: 1997
  2. PAXIL [Concomitant]
     Active Substance: PAROXETINE HYDROCHLORIDE
     Dosage: 20 MG, 1X/DAY IN THE MORNING
     Route: 048
  3. LITHIUM. [Concomitant]
     Active Substance: LITHIUM
     Indication: BIPOLAR DISORDER
     Dosage: 450 MG, 3X/DAY
     Route: 048
  4. LITHIUM. [Concomitant]
     Active Substance: LITHIUM
     Indication: PSYCHOTIC BEHAVIOUR
  5. KLONOPIN [Concomitant]
     Active Substance: CLONAZEPAM
     Indication: PSYCHOTIC BEHAVIOUR
  6. GEODON [Suspect]
     Active Substance: ZIPRASIDONE HYDROCHLORIDE\ZIPRASIDONE MESYLATE
     Indication: BIPOLAR DISORDER
     Dosage: 20 MG, 2X/DAY
     Route: 048
     Dates: start: 201609, end: 2016
  7. GEODON [Suspect]
     Active Substance: ZIPRASIDONE HYDROCHLORIDE\ZIPRASIDONE MESYLATE
     Indication: PSYCHOTIC BEHAVIOUR
     Dosage: 40 MG, 2X/DAY
     Route: 048
     Dates: start: 2016, end: 2016
  8. GEODON [Suspect]
     Active Substance: ZIPRASIDONE HYDROCHLORIDE\ZIPRASIDONE MESYLATE
     Dosage: 60 MG, 2X/DAY
     Route: 048
     Dates: start: 2016
  9. PAXIL [Concomitant]
     Active Substance: PAROXETINE HYDROCHLORIDE
     Indication: PSYCHOTIC BEHAVIOUR
     Dosage: 40 MG, 1X/DAY IN THE MORNING
     Route: 048
  10. KLONOPIN [Concomitant]
     Active Substance: CLONAZEPAM
     Indication: BIPOLAR DISORDER
     Dosage: 1 MG, 2X/DAY
     Route: 048

REACTIONS (4)
  - Hallucination [Recovered/Resolved]
  - Hypersomnia [Unknown]
  - Pre-existing condition improved [Unknown]
  - Therapeutic response unexpected [Unknown]

NARRATIVE: CASE EVENT DATE: 2016
